FAERS Safety Report 8523139-8 (Version None)
Quarter: 2012Q3

REPORT INFORMATION
  Report Type: 
  Country: None (occurrence: None)
  Receive Date: 20120713
  Receipt Date: 20120713
  Transmission Date: 20120928
  Serious: Yes (Hospitalization)
  Sender: FDA-Public Use
  Company Number: None

PATIENT
  Age: 68 Year
  Sex: Male
  Weight: 60.7 kg

DRUGS (4)
  1. FENTANYL [Suspect]
     Indication: SEDATION
     Dates: start: 20120514, end: 20120514
  2. FENTANYL [Suspect]
     Indication: CARDIOVERSION
     Dates: start: 20120514, end: 20120514
  3. MIDAZOLAM [Suspect]
     Indication: CARDIOVERSION
     Dates: start: 20120514, end: 20120514
  4. MIDAZOLAM [Suspect]
     Indication: SEDATION
     Dates: start: 20120514, end: 20120514

REACTIONS (1)
  - RESPIRATORY DEPRESSION [None]
